FAERS Safety Report 12805720 (Version 1)
Quarter: 2016Q4

REPORT INFORMATION
  Report Type: Report from Study
  Country: US (occurrence: US)
  Receive Date: 20161004
  Receipt Date: 20161004
  Transmission Date: 20170207
  Serious: Yes (Other)
  Sender: FDA-Public Use
  Company Number: US-AMGEN-USASL2016132237

PATIENT
  Age: 79 Year
  Sex: Female

DRUGS (1)
  1. REPATHA [Suspect]
     Active Substance: EVOLOCUMAB
     Indication: BLOOD CHOLESTEROL INCREASED
     Dosage: 140 MG, Q2WK
     Route: 065

REACTIONS (19)
  - Dyspnoea [Unknown]
  - Somnolence [Unknown]
  - Feeling abnormal [Unknown]
  - Depression [Unknown]
  - Cerebral disorder [Unknown]
  - Crying [Unknown]
  - Pain [Unknown]
  - Fall [Unknown]
  - Impaired driving ability [Unknown]
  - Back pain [Unknown]
  - Abasia [Unknown]
  - Finger deformity [Unknown]
  - Injection site pain [Unknown]
  - Influenza like illness [Unknown]
  - Anxiety [Unknown]
  - Visual impairment [Not Recovered/Not Resolved]
  - Personality change [Unknown]
  - Stress [Unknown]
  - Fear of death [Unknown]
